FAERS Safety Report 7565361-3 (Version None)
Quarter: 2011Q2

REPORT INFORMATION
  Report Type: 
  Country: None (occurrence: None)
  Receive Date: 20110623
  Receipt Date: 20110616
  Transmission Date: 20111010
  Serious: No
  Sender: FDA-Public Use
  Company Number: US-BIOGENIDEC-2010BI034172

PATIENT
  Sex: Male

DRUGS (1)
  1. TYSABRI [Suspect]
     Indication: MULTIPLE SCLEROSIS
     Route: 042
     Dates: start: 20100831

REACTIONS (8)
  - TOOTH ABSCESS [None]
  - BALANCE DISORDER [None]
  - MULTIPLE SCLEROSIS RELAPSE [None]
  - POLLAKIURIA [None]
  - VISUAL IMPAIRMENT [None]
  - DIPLOPIA [None]
  - PYREXIA [None]
  - TOOTH INFECTION [None]
